FAERS Safety Report 9501622 (Version 1)
Quarter: 2013Q3

REPORT INFORMATION
  Report Type: Other
  Country: GB (occurrence: GB)
  Receive Date: 20130905
  Receipt Date: 20130905
  Transmission Date: 20140515
  Serious: Yes (Other)
  Sender: FDA-Public Use
  Company Number: GB-PERRIGO-13GB008990

PATIENT
  Age: 65 Year
  Sex: Male

DRUGS (1)
  1. CETIRIZINE HYDROCHLORIDE 16208/0066 10 MG [Suspect]
     Indication: SEASONAL ALLERGY
     Dosage: 10 MG, QD
     Route: 048
     Dates: start: 20130610

REACTIONS (2)
  - Amnesia [Recovered/Resolved]
  - Disturbance in attention [Recovered/Resolved]
